FAERS Safety Report 13822826 (Version 14)
Quarter: 2021Q4

REPORT INFORMATION
  Report Type: Report from Study
  Country: AU (occurrence: AU)
  Receive Date: 20170801
  Receipt Date: 20211122
  Transmission Date: 20220303
  Serious: Yes (Death, Life-Threatening, Hospitalization, Disabling, Other)
  Sender: FDA-Public Use
  Company Number: AU-CELGENE-AUS-20170606174

PATIENT
  Age: 81 Year
  Sex: Male
  Weight: 51 kg

DRUGS (40)
  1. VIDAZA [Suspect]
     Active Substance: AZACITIDINE
     Indication: Myelodysplastic syndrome
     Dosage: 75 MILLIGRAM/SQ. METER
     Route: 058
     Dates: start: 20170313, end: 20170516
  2. VENETOCLAX [Suspect]
     Active Substance: VENETOCLAX
     Indication: Acute myeloid leukaemia
     Dosage: 100 MILLIGRAM
     Route: 048
     Dates: start: 20170313, end: 20170313
  3. VENETOCLAX [Suspect]
     Active Substance: VENETOCLAX
     Dosage: 200 MILLIGRAM
     Route: 048
     Dates: start: 20170314, end: 20170314
  4. VENETOCLAX [Suspect]
     Active Substance: VENETOCLAX
     Dosage: 400 MILLIGRAM
     Route: 048
     Dates: start: 20170315, end: 20170315
  5. VENETOCLAX [Suspect]
     Active Substance: VENETOCLAX
     Dosage: 800 MILLIGRAM
     Route: 048
     Dates: start: 20170316, end: 20170321
  6. SPIRIVA [Concomitant]
     Active Substance: TIOTROPIUM BROMIDE MONOHYDRATE
     Indication: Respiratory disorder
     Dosage: 18 MICROGRAM
     Route: 055
     Dates: start: 20170209
  7. COLOXYL AND SENNA [Concomitant]
     Indication: Constipation prophylaxis
     Dosage: 4 TABLET
     Route: 048
     Dates: start: 20170315, end: 20170617
  8. MOVICOL [Concomitant]
     Active Substance: POLYETHYLENE GLYCOL 3350\POTASSIUM CHLORIDE\SODIUM BICARBONATE\SODIUM CHLORIDE
     Indication: Constipation prophylaxis
     Route: 048
     Dates: start: 20170317, end: 20170706
  9. VALTREX [Concomitant]
     Active Substance: VALACYCLOVIR HYDROCHLORIDE
     Indication: Antiviral prophylaxis
     Dosage: 1000 MILLIGRAM
     Route: 048
     Dates: start: 20170317, end: 20170706
  10. PETER [Concomitant]
     Indication: Prophylaxis
     Dosage: 40 MILLILITER
     Route: 048
     Dates: start: 20170317, end: 20170706
  11. ONDANSETRON [Concomitant]
     Active Substance: ONDANSETRON
     Indication: Nausea
     Route: 048
     Dates: start: 20170404, end: 20170607
  12. ACETAMINOPHEN [Concomitant]
     Active Substance: ACETAMINOPHEN
     Indication: Headache
     Dosage: 4 GRAM
     Route: 048
     Dates: start: 20170402, end: 20170605
  13. AMBISOME [Concomitant]
     Active Substance: AMPHOTERICIN B
     Indication: Antifungal prophylaxis
     Dosage: 25 MILLIGRAM
     Route: 041
     Dates: start: 20170404, end: 20170701
  14. MEROPENEM [Concomitant]
     Active Substance: MEROPENEM
     Indication: Pyrexia
     Dosage: 3 GRAM
     Route: 041
     Dates: start: 20170404, end: 20170706
  15. NILSTAT [Concomitant]
     Active Substance: NYSTATIN
     Indication: Antifungal prophylaxis
     Dosage: 4 MILLILITER
     Route: 041
     Dates: start: 20170405, end: 20170706
  16. THIAMINE [Concomitant]
     Active Substance: THIAMINE
     Indication: Nutritional supplementation
     Dosage: 300 MILLIGRAM
     Route: 041
     Dates: start: 20170405, end: 20170704
  17. THIAMINE [Concomitant]
     Active Substance: THIAMINE
     Dosage: 100 MILLIGRAM
     Route: 041
     Dates: start: 20170606, end: 20170704
  18. AZITHROMYCIN [Concomitant]
     Active Substance: AZITHROMYCIN
     Indication: Sepsis
     Dosage: 500 MILLIGRAM
     Route: 048
     Dates: start: 20170406
  19. VANCOMYCIN [Concomitant]
     Active Substance: VANCOMYCIN
     Indication: Sepsis
     Dosage: 2 GRAM
     Route: 058
     Dates: start: 20170406, end: 20170701
  20. HUMAN RED BLOOD CELL [Concomitant]
     Active Substance: HUMAN RED BLOOD CELL
     Indication: Product used for unknown indication
     Route: 041
     Dates: start: 20170313, end: 20170428
  21. POTASSIUM CHLORIDE [Concomitant]
     Active Substance: POTASSIUM CHLORIDE
     Indication: Prophylaxis
     Dosage: 4 MILLIMOLE
     Route: 041
     Dates: start: 20170406, end: 20170606
  22. MEPERIDINE [Concomitant]
     Active Substance: MEPERIDINE
     Indication: Chills
     Dosage: 25 MILLIGRAM
     Route: 041
     Dates: start: 20170404, end: 20170701
  23. FUROSEMIDE [Concomitant]
     Active Substance: FUROSEMIDE
     Indication: Dehydration
     Route: 041
     Dates: start: 20170405, end: 20170704
  24. FUROSEMIDE [Concomitant]
     Active Substance: FUROSEMIDE
     Indication: Discharge
  25. POSACONAZOLE [Concomitant]
     Active Substance: POSACONAZOLE
     Indication: Antifungal prophylaxis
     Dosage: 600 MILLIGRAM
     Route: 048
     Dates: start: 20170410
  26. POSACONAZOLE [Concomitant]
     Active Substance: POSACONAZOLE
     Dosage: 600 MILLIGRAM
     Route: 048
     Dates: start: 20170609, end: 20170610
  27. AMPHOTERICIN B [Concomitant]
     Active Substance: AMPHOTERICIN B
     Indication: Oral candidiasis
     Dosage: 18 GRAM
     Route: 048
     Dates: start: 20170607, end: 20170704
  28. SODIUM PHOSPHATE [Concomitant]
     Active Substance: SODIUM PHOSPHATE
     Indication: Product used for unknown indication
     Dosage: 18 GRAM
     Route: 048
     Dates: start: 20170610, end: 20170610
  29. VITAMIN K [Concomitant]
     Active Substance: PHYTONADIONE
     Indication: Prophylaxis
     Dosage: 18 GRAM
     Route: 041
     Dates: start: 20170608, end: 20170608
  30. VITAMIN K [Concomitant]
     Active Substance: PHYTONADIONE
     Route: 041
     Dates: start: 20170608, end: 20170611
  31. ALBUMIN HUMAN [Concomitant]
     Active Substance: ALBUMIN HUMAN
     Indication: Blood albumin decreased
     Route: 041
     Dates: start: 20170412, end: 20170611
  32. ALBUMIN HUMAN [Concomitant]
     Active Substance: ALBUMIN HUMAN
     Indication: Full blood count decreased
     Route: 041
     Dates: start: 20170607, end: 20170705
  33. Grapseed oil [Concomitant]
     Indication: Dental disorder prophylaxis
     Route: 061
     Dates: start: 20170628, end: 20170705
  34. HYDROCORTISONE [Concomitant]
     Active Substance: HYDROCORTISONE
     Indication: Dyspnoea
     Dosage: 200 MILLIGRAM
     Route: 065
     Dates: start: 20170415, end: 20170612
  35. ALLOPURINOL [Concomitant]
     Active Substance: ALLOPURINOL
     Indication: Tumour lysis syndrome
     Route: 065
     Dates: start: 20170312, end: 20170316
  36. ALLOPURINOL [Concomitant]
     Active Substance: ALLOPURINOL
     Indication: Prophylaxis
  37. SODIUM CHLORIDE [Concomitant]
     Active Substance: SODIUM CHLORIDE
     Indication: Prophylaxis
     Route: 065
     Dates: start: 20170312, end: 20170317
  38. CALCIUM CHLORIDE\POTASSIUM CHLORIDE\SODIUM CHLORIDE\SODIUM LACTATE [Concomitant]
     Active Substance: CALCIUM CHLORIDE\POTASSIUM CHLORIDE\SODIUM CHLORIDE\SODIUM LACTATE
     Indication: Prophylaxis
     Route: 065
     Dates: start: 20170314, end: 20170315
  39. OXYGEN [Concomitant]
     Active Substance: OXYGEN
     Indication: Product used for unknown indication
     Route: 065
  40. NOREPINEPHRINE [Concomitant]
     Active Substance: NOREPINEPHRINE
     Indication: Product used for unknown indication
     Route: 065

REACTIONS (5)
  - Pneumonia fungal [Recovered/Resolved]
  - Pneumonia [Fatal]
  - Respiratory failure [Unknown]
  - Pulmonary sepsis [Unknown]
  - Acute kidney injury [Unknown]

NARRATIVE: CASE EVENT DATE: 20170606
